FAERS Safety Report 15029705 (Version 1)
Quarter: 2018Q2

REPORT INFORMATION
  Report Type: Report from Study
  Country: IE (occurrence: IE)
  Receive Date: 20180619
  Receipt Date: 20180619
  Transmission Date: 20180711
  Serious: Yes (Death)
  Sender: FDA-Public Use
  Company Number: IE-JNJFOC-20180620598

PATIENT
  Sex: Female

DRUGS (4)
  1. IMBRUVICA [Suspect]
     Active Substance: IBRUTINIB
     Indication: WALDENSTROM^S MACROGLOBULINAEMIA
     Route: 048
     Dates: start: 20170403, end: 20180513
  2. CALCICHEW [Concomitant]
     Active Substance: CALCIUM CARBONATE
     Route: 050
  3. ELTROXIN [Concomitant]
     Active Substance: LEVOTHYROXINE
     Route: 050
  4. AZITHROMYCIN ANHYDROUS. [Concomitant]
     Active Substance: AZITHROMYCIN ANHYDROUS
     Route: 050

REACTIONS (1)
  - Death [Fatal]
